FAERS Safety Report 17746039 (Version 2)
Quarter: 2020Q3

REPORT INFORMATION
  Report Type: Report from Study
  Country: NL (occurrence: NL)
  Receive Date: 20200505
  Receipt Date: 20200821
  Transmission Date: 20201102
  Serious: Yes (Other)
  Sender: FDA-Public Use
  Company Number: NL-TEVA-2020-NL-1230003

PATIENT
  Age: 27 Year
  Sex: Female

DRUGS (1)
  1. SULFASALAZINE / BRAND NAME NOT SPECIFIED [Suspect]
     Active Substance: SULFASALAZINE
     Indication: RHEUMATOID ARTHRITIS
     Dosage: 1500MG, 2X/D
     Dates: start: 20140302, end: 20150619

REACTIONS (2)
  - Leukopenia [Recovered/Resolved]
  - Rash [Recovered/Resolved]

NARRATIVE: CASE EVENT DATE: 20150619
